FAERS Safety Report 5005036-8 (Version None)
Quarter: 2006Q2

REPORT INFORMATION
  Report Type: 
  Country: None (occurrence: None)
  Receive Date: 20060512
  Receipt Date: 20060501
  Transmission Date: 20061013
  Serious: Yes (Other)
  Sender: FDA-Public Use
  Company Number: 06-0056PO

PATIENT
  Age: 49 Year
  Sex: Female

DRUGS (1)
  1. MEFENAMIC ACID [Suspect]
     Indication: MIGRAINE
     Dosage: 250MG, TID, ORAL
     Route: 048
     Dates: start: 20050901, end: 20060226

REACTIONS (2)
  - COLITIS [None]
  - FAECAL INCONTINENCE [None]
